FAERS Safety Report 7676478-7 (Version None)
Quarter: 2011Q3

REPORT INFORMATION
  Report Type: 
  Country: None (occurrence: None)
  Receive Date: 20110805
  Receipt Date: 20110721
  Transmission Date: 20111222
  Serious: Yes (Other)
  Sender: FDA-Public Use
  Company Number: 1000019450

PATIENT
  Age: 61 Year
  Sex: Male

DRUGS (1)
  1. ROFLUMILAST (ROFLUMILAST) (500 MICROGRAM, TABLETS) [Suspect]
     Indication: CHRONIC OBSTRUCTIVE PULMONARY DISEASE
     Dosage: 500 MCG (500 MCG, 1 IN 1 D), ORAL
     Route: 048
     Dates: start: 20110214, end: 20110307

REACTIONS (5)
  - SUICIDAL IDEATION [None]
  - INSOMNIA [None]
  - NAUSEA [None]
  - VOMITING [None]
  - DIARRHOEA [None]
